FAERS Safety Report 12606520 (Version 1)
Quarter: 2016Q3

REPORT INFORMATION
  Report Type: Spontaneous
  Country: US (occurrence: None)
  Receive Date: 20160728
  Receipt Date: 20160728
  Transmission Date: 20161109
  Serious: Yes (Hospitalization)
  Sender: FDA-Public Use
  Company Number: None

PATIENT
  Age: 6 Month
  Sex: Male
  Weight: 8.23 kg

DRUGS (1)
  1. BABY TEETHING (HYLAND HOMEOPATHIC) [Suspect]
     Active Substance: HOMEOPATHICS
     Indication: TEETHING
     Route: 048
     Dates: start: 20160723, end: 20160723

REACTIONS (8)
  - Coordination abnormal [None]
  - Feeling abnormal [None]
  - Toxicity to various agents [None]
  - Feeling drunk [None]
  - Delirium [None]
  - Fatigue [None]
  - Euphoric mood [None]
  - Restlessness [None]

NARRATIVE: CASE EVENT DATE: 20160723
